FAERS Safety Report 5278582-X (Version None)
Quarter: 2007Q1

REPORT INFORMATION
  Report Type: 
  Country: None (occurrence: None)
  Receive Date: 20070328
  Receipt Date: 20070327
  Transmission Date: 20070707
  Serious: Yes (Other)
  Sender: FDA-Public Use
  Company Number: 540

PATIENT
  Age: 39 Year
  Sex: Female
  Weight: 67 kg

DRUGS (10)
  1. FLOLAN [Suspect]
     Dosage: 27NGKM UNKNOWN
     Route: 042
     Dates: start: 20061101
  2. LASIX [Concomitant]
     Dosage: 40MG PER DAY
     Route: 048
  3. HEPARIN [Concomitant]
     Route: 042
  4. TYLENOL [Concomitant]
     Dosage: 500MG AS REQUIRED
     Route: 048
  5. TRACLEER [Concomitant]
     Dosage: 125MG TWICE PER DAY
     Route: 048
  6. FENTANYL [Concomitant]
     Dosage: 25MCG AS DIRECTED
     Route: 062
  7. MAGNESIUM OXIDE [Concomitant]
     Dosage: 400MG PER DAY
     Route: 048
  8. MINOCYCLINE HCL [Concomitant]
     Dosage: 75MG TWICE PER DAY
     Route: 048
  9. OXYGEN [Concomitant]
     Dosage: 2L AT NIGHT
  10. COUMADIN [Concomitant]
     Dosage: 7.5MG PER DAY

REACTIONS (2)
  - CATHETER RELATED COMPLICATION [None]
  - PHARMACEUTICAL PRODUCT COMPLAINT [None]
